FAERS Safety Report 8006440-6 (Version None)
Quarter: 2011Q4

REPORT INFORMATION
  Report Type: 
  Country: None (occurrence: None)
  Receive Date: 20111226
  Receipt Date: 20111219
  Transmission Date: 20120403
  Serious: Yes (Hospitalization, Other)
  Sender: FDA-Public Use
  Company Number: US-ACTELION-A-US2011-53073

PATIENT

DRUGS (1)
  1. TRACLEER [Suspect]
     Indication: PULMONARY ARTERIAL HYPERTENSION
     Dosage: UNK MG, UNK
     Route: 048
     Dates: start: 20110802

REACTIONS (6)
  - MECHANICAL VENTILATION [None]
  - TERMINAL STATE [None]
  - PNEUMONIA [None]
  - PLEURAL EFFUSION [None]
  - ASPIRATION PLEURAL CAVITY [None]
  - DYSPNOEA [None]
